FAERS Safety Report 7303886-6 (Version None)
Quarter: 2011Q1

REPORT INFORMATION
  Report Type: 
  Country: None (occurrence: None)
  Receive Date: 20110221
  Receipt Date: 20110216
  Transmission Date: 20110831
  Serious: Yes (Hospitalization)
  Sender: FDA-Public Use
  Company Number: B0700226A

PATIENT
  Sex: Male
  Weight: 2.6 kg

DRUGS (1)
  1. ZELITREX [Suspect]
     Indication: HERPES VIRUS INFECTION
     Dosage: 500MG TWICE PER DAY
     Route: 064
     Dates: start: 20110126, end: 20110128

REACTIONS (2)
  - DRUG EXPOSURE DURING PREGNANCY [None]
  - APLASTIC ANAEMIA [None]
